FAERS Safety Report 20765616 (Version 1)
Quarter: 2022Q2

REPORT INFORMATION
  Report Type: Spontaneous
  Country: US (occurrence: US)
  Receive Date: 20220428
  Receipt Date: 20220428
  Transmission Date: 20220720
  Serious: No
  Sender: FDA-Public Use
  Company Number: US-SA-SAC20220426001974

PATIENT
  Sex: Male

DRUGS (1)
  1. DUPIXENT [Suspect]
     Active Substance: DUPILUMAB
     Indication: Dermatitis atopic
     Dosage: 300 MG, QOW
     Route: 058
     Dates: start: 20220414

REACTIONS (7)
  - Pain in extremity [Unknown]
  - Epistaxis [Unknown]
  - Scratch [Unknown]
  - Sleep disorder [Unknown]
  - Nasal dryness [Unknown]
  - Pruritus [Unknown]
  - Dry skin [Unknown]
